FAERS Safety Report 6191530-3 (Version None)
Quarter: 2009Q2

REPORT INFORMATION
  Report Type: 
  Country: None (occurrence: None)
  Receive Date: 20090513
  Receipt Date: 20090427
  Transmission Date: 20091009
  Serious: Yes (Other)
  Sender: FDA-Public Use
  Company Number: CA-GENENTECH-282696

PATIENT
  Age: 31 Year
  Sex: Female

DRUGS (13)
  1. HERCEPTIN [Suspect]
     Indication: BREAST CANCER
     Dosage: UNK
     Route: 042
     Dates: start: 20010101
  2. HERCEPTIN [Suspect]
     Dosage: 20 MG, 1/WEEK
     Route: 037
     Dates: start: 20060101, end: 20080801
  3. HERCEPTIN [Suspect]
     Dosage: 40 MG, Q3W
     Route: 037
  4. HERCEPTIN [Suspect]
     Dosage: 50 MG, Q3W
     Route: 037
     Dates: start: 20080201, end: 20080801
  5. CAPECITABINE [Suspect]
     Indication: BREAST CANCER
     Dosage: UNK
     Route: 042
     Dates: start: 20010101
  6. CARBOPLATIN [Suspect]
     Indication: BREAST CANCER
     Dosage: UNK
     Route: 042
  7. PACLITAXEL [Suspect]
     Indication: BREAST CANCER
     Dosage: UNK
     Route: 042
  8. DOXORUBICIN HCL [Suspect]
     Indication: BREAST CANCER
     Dosage: UNK
     Route: 042
  9. METHOTREXATE [Suspect]
     Indication: BREAST CANCER
     Dosage: 10 MG, UNK
     Route: 037
  10. THIOTEPA [Suspect]
     Indication: BREAST CANCER
     Dosage: 10 MG, UNK
     Route: 037
     Dates: start: 20080201, end: 20080801
  11. DOXORUBICIN HCL [Suspect]
     Indication: BREAST CANCER
     Dosage: UNK
     Route: 065
     Dates: start: 19990101
  12. CYCLOPHOSPHAMIDE [Suspect]
     Indication: BREAST CANCER
     Dosage: UNK
     Route: 065
  13. RADIATION [Concomitant]
     Indication: CENTRAL NERVOUS SYSTEM LESION
     Dosage: UNK

REACTIONS (9)
  - ANAEMIA [None]
  - EYELID PTOSIS [None]
  - HERPES ZOSTER [None]
  - HYPOAESTHESIA [None]
  - METASTASES TO MENINGES [None]
  - NEUTROPENIA [None]
  - PARALYSIS [None]
  - PERONEAL NERVE PALSY [None]
  - VISUAL IMPAIRMENT [None]
